FAERS Safety Report 10749628 (Version 10)
Quarter: 2016Q2

REPORT INFORMATION
  Report Type: Spontaneous
  Country: HU (occurrence: HU)
  Receive Date: 20150129
  Receipt Date: 20160609
  Transmission Date: 20160815
  Serious: Yes (Hospitalization, Other)
  Sender: FDA-Public Use
  Company Number: HU-PFIZER INC-2015036178

PATIENT
  Age: 71 Year
  Sex: Female

DRUGS (3)
  1. SUTENT [Suspect]
     Active Substance: SUNITINIB MALATE
     Indication: CLEAR CELL RENAL CELL CARCINOMA
     Dosage: 50 MG, DAILY, CYCLIC IN SCHEME 2/1 (2 WEEKS TAKING, 1 WEEK BREAK)
     Route: 048
     Dates: start: 20140626, end: 201501
  2. SUTENT [Suspect]
     Active Substance: SUNITINIB MALATE
     Dosage: 50 MG, DAILY, CYCLIC IN SCHEME 2/1 (2 WEEKS TAKING, 1 WEEK BREAK)
     Route: 048
  3. SUTENT [Suspect]
     Active Substance: SUNITINIB MALATE
     Dosage: 37.5 MG, DAILY CYCLIC  IN SCHEME 2/1 (2 WEEKS TAKING, 1 WEEK BREAK)
     Route: 048
     Dates: start: 20160317

REACTIONS (22)
  - Pulmonary embolism [Unknown]
  - Gastrooesophageal reflux disease [Unknown]
  - Insomnia [Unknown]
  - Dehydration [Unknown]
  - Chest discomfort [Unknown]
  - Cough [Unknown]
  - Peripheral swelling [Unknown]
  - Muscle spasms [Unknown]
  - Circulatory collapse [Unknown]
  - Asthenia [Not Recovered/Not Resolved]
  - Pyrexia [Unknown]
  - Chills [Unknown]
  - Head injury [Unknown]
  - Diarrhoea [Recovering/Resolving]
  - Deep vein thrombosis [Unknown]
  - Blood thyroid stimulating hormone increased [Not Recovered/Not Resolved]
  - Palmar-plantar erythrodysaesthesia syndrome [Not Recovered/Not Resolved]
  - Night sweats [Not Recovered/Not Resolved]
  - Asphyxia [Unknown]
  - Productive cough [Unknown]
  - Fatigue [Not Recovered/Not Resolved]
  - Dyspepsia [Not Recovered/Not Resolved]

NARRATIVE: CASE EVENT DATE: 201501
